FAERS Safety Report 5408854-7 (Version None)
Quarter: 2007Q3

REPORT INFORMATION
  Report Type: 
  Country: None (occurrence: None)
  Receive Date: 20070808
  Receipt Date: 20070727
  Transmission Date: 20080115
  Serious: Yes (Hospitalization, Other)
  Sender: FDA-Public Use
  Company Number: JP-PFIZER INC-2007062641

PATIENT
  Age: 72 Year
  Sex: Male

DRUGS (6)
  1. AZULFIDINE EN-TABS [Suspect]
     Indication: CAPLAN'S SYNDROME
     Dosage: DAILY DOSE:1GRAM
     Route: 048
     Dates: start: 20070630, end: 20070725
  2. PREDONINE [Concomitant]
  3. ACINON [Concomitant]
  4. HYPEN [Concomitant]
     Route: 048
  5. ISCOTIN [Concomitant]
     Route: 048
  6. PYDOXAL [Concomitant]

REACTIONS (1)
  - NEUTROPENIA [None]
